FAERS Safety Report 19899557 (Version 1)
Quarter: 2021Q3

REPORT INFORMATION
  Report Type: Spontaneous
  Country: US (occurrence: US)
  Receive Date: 20210930
  Receipt Date: 20210930
  Transmission Date: 20211014
  Serious: Yes (Hospitalization)
  Sender: FDA-Public Use
  Company Number: US-CHIESI-2021CHF04776

PATIENT
  Sex: Female
  Weight: 84 kg

DRUGS (5)
  1. FERRIPROX [Suspect]
     Active Substance: DEFERIPRONE
     Indication: HAEMOCHROMATOSIS
     Dosage: 3000 MILLIGRAM, BID
     Route: 048
     Dates: start: 202102
  2. FERRIPROX [Suspect]
     Active Substance: DEFERIPRONE
     Indication: THALASSAEMIA BETA
     Dosage: UNK
     Dates: start: 202010, end: 202012
  3. FERRIPROX [Suspect]
     Active Substance: DEFERIPRONE
     Indication: TRANSFUSION
     Dosage: UNK
     Route: 048
     Dates: start: 20160913, end: 202009
  4. JADENU [Concomitant]
     Active Substance: DEFERASIROX
     Indication: PRODUCT USED FOR UNKNOWN INDICATION
     Dosage: UNK
  5. VITAMIN C [Concomitant]
     Active Substance: ASCORBIC ACID
     Indication: PRODUCT USED FOR UNKNOWN INDICATION
     Dosage: UNK

REACTIONS (1)
  - Thrombosis [Recovering/Resolving]

NARRATIVE: CASE EVENT DATE: 2021
